FAERS Safety Report 7456072-3 (Version None)
Quarter: 2011Q2

REPORT INFORMATION
  Report Type: 
  Country: None (occurrence: None)
  Receive Date: 20110503
  Receipt Date: 20110428
  Transmission Date: 20111010
  Serious: Yes (Other)
  Sender: FDA-Public Use
  Company Number: US-PFIZER INC-2011004691

PATIENT
  Sex: Male

DRUGS (1)
  1. VIAGRA [Suspect]
     Indication: ERECTILE DYSFUNCTION
     Dosage: 25 MG EVERY TWO OR THREE DAYS
     Route: 048
     Dates: start: 20110301, end: 20110315

REACTIONS (2)
  - TESTICULAR DISORDER [None]
  - VISION BLURRED [None]
